FAERS Safety Report 17939833 (Version 3)
Quarter: 2020Q3

REPORT INFORMATION
  Report Type: Report from Study
  Country: FR (occurrence: FR)
  Receive Date: 20200624
  Receipt Date: 20200717
  Transmission Date: 20201103
  Serious: Yes (Hospitalization)
  Sender: FDA-Public Use
  Company Number: FR-PFIZER INC-2020239376

PATIENT
  Age: 73 Year
  Sex: Female

DRUGS (7)
  1. AVELUMAB [Suspect]
     Active Substance: AVELUMAB
     Dosage: 540 MG
     Dates: start: 20200316, end: 20200316
  2. GEMCITABINE HYDROCHLORIDE. [Suspect]
     Active Substance: GEMCITABINE HYDROCHLORIDE
     Dosage: 1550 MG
     Dates: start: 20200615, end: 20200615
  3. GEMCITABINE HYDROCHLORIDE. [Suspect]
     Active Substance: GEMCITABINE HYDROCHLORIDE
     Dosage: 1550 MG
     Dates: start: 20200608, end: 20200608
  4. CISPLATIN. [Suspect]
     Active Substance: CISPLATIN
     Dosage: 109 MG
     Dates: start: 20200608, end: 20200608
  5. AVELUMAB [Suspect]
     Active Substance: AVELUMAB
     Dosage: 520 MG
     Dates: start: 20200608, end: 20200608
  6. CISPLATIN. [Suspect]
     Active Substance: CISPLATIN
     Dosage: 111 MG
     Dates: start: 20200316, end: 20200316
  7. GEMCITABINE HYDROCHLORIDE. [Suspect]
     Active Substance: GEMCITABINE HYDROCHLORIDE
     Dosage: 1500 MG
     Dates: start: 20200316, end: 20200316

REACTIONS (1)
  - Posterior reversible encephalopathy syndrome [Recovered/Resolved]

NARRATIVE: CASE EVENT DATE: 20200616
